FAERS Safety Report 9474676 (Version 6)
Quarter: 2014Q3

REPORT INFORMATION
  Report Type: Spontaneous
  Country: US (occurrence: US)
  Receive Date: 20130823
  Receipt Date: 20140808
  Transmission Date: 20150326
  Serious: Yes (Hospitalization, Other)
  Sender: FDA-Public Use
  Company Number: US-009507513-1308USA009372

PATIENT
  Sex: Female
  Weight: 52.18 kg

DRUGS (9)
  1. CALCIUM (UNSPECIFIED) (+) VITAMIN D (UNSPECIFIED) [Concomitant]
     Active Substance: CALCIUM CARBONATE\VITAMIN D
     Indication: OSTEOPENIA
  2. PREDNISONE. [Concomitant]
     Active Substance: PREDNISONE
     Indication: RHEUMATOID ARTHRITIS
     Dosage: 5 MG, QD
     Dates: start: 1994, end: 1996
  3. FOSAMAX [Suspect]
     Active Substance: ALENDRONATE SODIUM
     Indication: OSTEOPENIA
     Dosage: 70 MG, UNK
     Route: 048
     Dates: start: 200110, end: 200802
  4. ASCORBIC ACID. [Concomitant]
     Active Substance: ASCORBIC ACID
     Dosage: 100-1000 MG, QD
     Dates: start: 1994
  5. ALENDRONATE SODIUM. [Suspect]
     Active Substance: ALENDRONATE SODIUM
     Indication: OSTEOPOROSIS
     Dosage: 70 MG, UNK
     Route: 048
     Dates: start: 200802, end: 201008
  6. ALENDRONATE SODIUM. [Suspect]
     Active Substance: ALENDRONATE SODIUM
     Indication: OSTEOPENIA
  7. CALCIUM (UNSPECIFIED) (+) VITAMIN D (UNSPECIFIED) [Concomitant]
     Active Substance: CALCIUM CARBONATE\VITAMIN D
     Indication: OSTEOPOROSIS
     Dosage: 500 MG/UNK UNITS-1200 MG/400 UNITS, QD
     Dates: start: 1994
  8. FOSAMAX [Suspect]
     Active Substance: ALENDRONATE SODIUM
     Indication: OSTEOPOROSIS
     Dosage: 10 MG, UNK
     Route: 048
     Dates: start: 199610, end: 200110
  9. FOSAMAX PLUS D [Suspect]
     Active Substance: ALENDRONATE SODIUM\CHOLECALCIFEROL
     Dosage: 70MG-2800 IU
     Route: 048
     Dates: start: 20080211, end: 20081008

REACTIONS (37)
  - Hip arthroplasty [Recovered/Resolved]
  - Hip arthroplasty [Unknown]
  - Gastrointestinal tract irritation [Unknown]
  - Femur fracture [Recovered/Resolved]
  - Hysterectomy [Unknown]
  - Arteriosclerosis [Unknown]
  - Anaemia [Unknown]
  - Bunion operation [Unknown]
  - Foot deformity [Unknown]
  - Cataract operation [Unknown]
  - Blood disorder [Unknown]
  - Staphylococcal bacteraemia [Unknown]
  - Hypertension [Unknown]
  - Rib fracture [Recovering/Resolving]
  - Iron deficiency anaemia [Unknown]
  - Ovarian failure [Unknown]
  - Rib fracture [Unknown]
  - Asthenia [Unknown]
  - Hip arthroplasty [Unknown]
  - Cholecystectomy [Unknown]
  - Osteoarthritis [Unknown]
  - Renal cyst [Unknown]
  - Skeletal injury [Unknown]
  - Left atrial dilatation [Unknown]
  - Spinal osteoarthritis [Unknown]
  - Thyroid neoplasm [Unknown]
  - Hip arthroplasty [Unknown]
  - Dehydration [Unknown]
  - Adverse event [Unknown]
  - Blood calcium abnormal [Unknown]
  - Bone operation [Unknown]
  - Diarrhoea [Unknown]
  - Device related infection [Unknown]
  - Bone cyst [Unknown]
  - Pneumonia streptococcal [Unknown]
  - Hypophagia [Unknown]
  - Nausea [Unknown]

NARRATIVE: CASE EVENT DATE: 1996
